FAERS Safety Report 12675538 (Version 2)
Quarter: 2016Q4

REPORT INFORMATION
  Report Type: Spontaneous
  Country: JP (occurrence: JP)
  Receive Date: 20160823
  Receipt Date: 20161202
  Transmission Date: 20170207
  Serious: Yes (Death, Other)
  Sender: FDA-Public Use
  Company Number: JP-ROCHE-1818183

PATIENT
  Age: 82 Year
  Sex: Male
  Weight: 54 kg

DRUGS (5)
  1. ACTEMRA [Suspect]
     Active Substance: TOCILIZUMAB
     Indication: RHEUMATOID ARTHRITIS
     Route: 058
     Dates: start: 20140710, end: 20160121
  2. RHEUMATREX [Concomitant]
     Active Substance: METHOTREXATE SODIUM
     Dosage: THE FRACTIONATION DOSE FREQUENCY IS UNCERTAIN.
     Route: 048
     Dates: start: 2002
  3. NORVASC [Concomitant]
     Active Substance: AMLODIPINE BESYLATE
     Indication: HYPERTENSION
     Route: 048
     Dates: start: 20091222
  4. BUCILLAMINE [Concomitant]
     Active Substance: BUCILLAMINE
     Route: 048
     Dates: start: 2002
  5. OLMETEC [Concomitant]
     Active Substance: OLMESARTAN MEDOXOMIL
     Indication: HYPERTENSION
     Route: 048
     Dates: start: 20091222

REACTIONS (4)
  - Loss of consciousness [Unknown]
  - Lung neoplasm malignant [Fatal]
  - Pneumonia [Fatal]
  - Mediastinitis [Fatal]

NARRATIVE: CASE EVENT DATE: 201512
